FAERS Safety Report 4353539-1 (Version None)
Quarter: 2004Q2

REPORT INFORMATION
  Report Type: 
  Country: None (occurrence: None)
  Receive Date: 20040430
  Receipt Date: 20040419
  Transmission Date: 20050107
  Serious: Yes (Other)
  Sender: FDA-Public Use
  Company Number: 2004205871US

PATIENT
  Age: 62 Year
  Sex: Female
  Weight: 90.7 kg

DRUGS (6)
  1. ROGAINE [Suspect]
     Indication: ALOPECIA
     Dosage: 1 ML, BID, TOPICAL
     Route: 061
  2. LOPRESSOR [Concomitant]
  3. TAMOXIFEN CITRATE [Concomitant]
  4. SYNTHROID [Concomitant]
  5. ^PROTANIX^ [Concomitant]
  6. DIOVAN [Concomitant]

REACTIONS (4)
  - BREAST CANCER [None]
  - DRUG INEFFECTIVE [None]
  - HAIR TEXTURE ABNORMAL [None]
  - HYPERTRICHOSIS [None]
